FAERS Safety Report 7473627-0 (Version None)
Quarter: 2011Q2

REPORT INFORMATION
  Report Type: 
  Country: None (occurrence: None)
  Receive Date: 20110511
  Receipt Date: 20110503
  Transmission Date: 20111010
  Serious: Yes (Other)
  Sender: FDA-Public Use
  Company Number: FR-US-EMD SERONO, INC.-7015501

PATIENT
  Sex: Female
  Weight: 65 kg

DRUGS (2)
  1. REBIF [Suspect]
     Route: 058
     Dates: start: 20100216, end: 20100831
  2. REBIF [Suspect]
     Indication: MULTIPLE SCLEROSIS
     Route: 058
     Dates: end: 20100216

REACTIONS (3)
  - RETINOPATHY [None]
  - OPTIC NEURITIS [None]
  - VISUAL ACUITY REDUCED [None]
